FAERS Safety Report 6544137-X (Version None)
Quarter: 2010Q1

REPORT INFORMATION
  Report Type: 
  Country: None (occurrence: None)
  Receive Date: 20100119
  Receipt Date: 20100119
  Transmission Date: 20100710
  Serious: Yes (Other)
  Sender: FDA-Public Use
  Company Number: None

PATIENT
  Age: 35 Year
  Sex: Female
  Weight: 101.6057 kg

DRUGS (1)
  1. TYLENOL (CAPLET) [Suspect]
     Indication: OROPHARYNGEAL PAIN
     Dosage: 2 CAPLETS EVERY 8 HOURS PO
     Route: 048
     Dates: start: 20100111, end: 20100113

REACTIONS (4)
  - ABDOMINAL DISCOMFORT [None]
  - DYSPEPSIA [None]
  - EATING DISORDER [None]
  - NAUSEA [None]
